FAERS Safety Report 4327930-3 (Version None)
Quarter: 2004Q1

REPORT INFORMATION
  Report Type: 
  Country: None (occurrence: None)
  Receive Date: 20040325
  Receipt Date: 20040316
  Transmission Date: 20041129
  Serious: Yes (Hospitalization, Other)
  Sender: FDA-Public Use
  Company Number: 2004005485

PATIENT
  Age: 65 Year
  Sex: Male
  Weight: 89.3586 kg

DRUGS (7)
  1. LIPITOR [Suspect]
     Indication: ILL-DEFINED DISORDER
     Dosage: 40 MG
  2. VIAGRA [Suspect]
     Indication: ILL-DEFINED DISORDER
     Dates: start: 20030101
  3. SOTALOL HCL [Concomitant]
  4. DILTIAZEM HYDROCHLORIDE [Concomitant]
  5. WARFARIN SODIUM [Concomitant]
  6. CELECOXIB (CELECOXIB) [Concomitant]
  7. SIMVASTTIN (SIMVASTATIN) [Concomitant]

REACTIONS (3)
  - DRUG EFFECT DECREASED [None]
  - MYOCARDIAL INFARCTION [None]
  - VASCULAR BYPASS DYSFUNCTION [None]
